FAERS Safety Report 24664819 (Version 1)
Quarter: 2024Q4

REPORT INFORMATION
  Report Type: Spontaneous
  Country: CH (occurrence: CH)
  Receive Date: 20241126
  Receipt Date: 20241126
  Transmission Date: 20250115
  Serious: Yes (Hospitalization, Other)
  Sender: AMERICAN REGENT
  Company Number: CH-AMERICAN REGENT INC-2024004237

PATIENT
  Age: 47 Year
  Sex: Female
  Weight: 61 kg

DRUGS (2)
  1. VENOFER [Suspect]
     Active Substance: IRON SUCROSE
     Indication: Serum ferritin decreased
     Dosage: 200 MILLIGRAM
     Dates: start: 2023, end: 2023
  2. VENOFER [Suspect]
     Active Substance: IRON SUCROSE
     Dosage: IN 200 ML OF NACL 0.9 PERCENT (500 MG)
     Dates: start: 20240917, end: 20240917

REACTIONS (3)
  - Pancreatitis [Unknown]
  - Anaphylactoid reaction [Recovered/Resolved]
  - Contraindicated product administered [Unknown]

NARRATIVE: CASE EVENT DATE: 20240901
